FAERS Safety Report 5787337-9 (Version None)
Quarter: 2008Q2

REPORT INFORMATION
  Report Type: 
  Country: None (occurrence: None)
  Receive Date: 20080625
  Receipt Date: 20070924
  Transmission Date: 20081010
  Serious: No
  Sender: FDA-Public Use
  Company Number: US-ASTRAZENECA-2007UW22407

PATIENT
  Age: 70 Year
  Sex: Female
  Weight: 72.6 kg

DRUGS (7)
  1. PULMICORT FLEXHALER [Suspect]
     Indication: ASTHMA
     Route: 055
  2. PULMICORT [Concomitant]
     Indication: ASTHMA
     Route: 055
  3. SYMBICORT [Concomitant]
     Indication: ASTHMA
     Route: 055
  4. CRESTOR [Concomitant]
     Route: 048
  5. XANAX [Concomitant]
  6. FEMRING [Concomitant]
  7. M.V.I. [Concomitant]

REACTIONS (1)
  - SENSORY DISTURBANCE [None]
